FAERS Safety Report 4880949-6 (Version None)
Quarter: 2005Q4

REPORT INFORMATION
  Report Type: 
  Country: None (occurrence: None)
  Receive Date: 20051223
  Receipt Date: 20051101
  Transmission Date: 20060501
  Serious: No
  Sender: FDA-Public Use
  Company Number: 05P-163-0316094-00

PATIENT
  Age: 83 Year
  Sex: Female
  Weight: 50.3493 kg

DRUGS (10)
  1. HUMIRA [Suspect]
     Indication: RHEUMATOID ARTHRITIS
     Dosage: 40 MG, 1 IN 2 WK, SUBCUTANEOUS
     Route: 058
     Dates: start: 20040101
  2. RISEDRONATE SODIUM [Concomitant]
  3. LEVOTHYROXINE SODIUM [Concomitant]
  4. ESOMEPRAZOLE [Concomitant]
  5. NABUMETONE [Concomitant]
  6. ESTROGENS CONJUGATED [Concomitant]
  7. PROGESTERONE [Concomitant]
  8. METHOTREXATE [Concomitant]
  9. CALCIUM GLUCONATE [Concomitant]
  10. ASCORBIC ACID [Concomitant]

REACTIONS (1)
  - TOOTH INFECTION [None]
